FAERS Safety Report 9049741 (Version 1)
Quarter: 2013Q1

REPORT INFORMATION
  Report Type: Spontaneous
  Country: JP (occurrence: JP)
  Receive Date: 20130205
  Receipt Date: 20130205
  Transmission Date: 20140127
  Serious: Yes (Death)
  Sender: FDA-Public Use
  Company Number: JP-PFIZER INC-2013026272

PATIENT
  Age: 81 Year
  Sex: Male

DRUGS (4)
  1. CAMPTO [Suspect]
     Indication: RECTAL CANCER
     Dosage: UNK, ONCE A DAY
     Route: 041
  2. LEVOFOLINATE CALCIUM [Concomitant]
     Indication: RECTAL CANCER
     Dosage: UNK
  3. 5-FU [Concomitant]
     Indication: RECTAL CANCER
     Dosage: UNK
  4. AVASTIN [Concomitant]
     Dosage: UNK

REACTIONS (2)
  - Portal venous gas [Fatal]
  - Mesenteric artery thrombosis [Fatal]
